FAERS Safety Report 5065592-0 (Version None)
Quarter: 2006Q3

REPORT INFORMATION
  Report Type: 
  Country: None (occurrence: None)
  Receive Date: 20060725
  Receipt Date: 20060712
  Transmission Date: 20061208
  Serious: Yes (Other)
  Sender: FDA-Public Use
  Company Number: 2006088058

PATIENT
  Sex: Male

DRUGS (5)
  1. LYRICA [Suspect]
     Indication: NEUROPATHY
     Dosage: 150 MG (75 MG, 2 IN 1 D),
     Dates: start: 20060706, end: 20060709
  2. MILNACIPRAN HYDROCHLORIDE (MILNACIPRAN HYDROCHLORIDE) [Concomitant]
  3. CLONAZEPAM [Concomitant]
  4. FENTANYL [Concomitant]
  5. DEXTROPROPOXYPHENE HYDROCHLORIDE (DEXTROPROPOXYPHENE) [Concomitant]

REACTIONS (4)
  - CONDITION AGGRAVATED [None]
  - MYOCLONUS [None]
  - RESPIRATORY DISORDER [None]
  - RESPIRATORY FAILURE [None]
